FAERS Safety Report 9167415 (Version 2)
Quarter: 2013Q1

REPORT INFORMATION
  Report Type: Spontaneous
  Country: US (occurrence: None)
  Receive Date: 20130304
  Receipt Date: 20130305
  Transmission Date: 20140127
  Serious: Yes (Hospitalization)
  Sender: FDA-Public Use
  Company Number: USA/USA/13/0028222

PATIENT
  Age: 65 Year
  Sex: Male
  Weight: 89.36 kg

DRUGS (4)
  1. OMEPRAZOLE DELAYED-RELEASE [Suspect]
     Indication: DYSPEPSIA
     Route: 048
     Dates: end: 2012
  2. OMEPRAZOLE DELAYED-RELEASE [Suspect]
     Indication: GASTROOESOPHAGEAL REFLUX DISEASE
     Route: 048
     Dates: end: 2012
  3. NADOL (NADOLOL) [Concomitant]
  4. CILOSTAZOL (CILOSTAZOL) [Concomitant]

REACTIONS (2)
  - Compression fracture [None]
  - Spinal fracture [None]
